FAERS Safety Report 22197741 (Version 3)
Quarter: 2023Q2

REPORT INFORMATION
  Report Type: Spontaneous
  Country: TR (occurrence: TR)
  Receive Date: 20230411
  Receipt Date: 20230503
  Transmission Date: 20230721
  Serious: Yes (Disabling, Other)
  Sender: FDA-Public Use
  Company Number: TR-LGC-011796

PATIENT
  Age: 28 Year
  Sex: Female
  Weight: 48 kg

DRUGS (5)
  1. FACTIVE [Suspect]
     Active Substance: GEMIFLOXACIN MESYLATE
     Indication: Sinusitis
     Route: 048
     Dates: start: 202303, end: 20230401
  2. Levmont Film-Coated Tablet (Montelukast,?Levocetirizine) [Concomitant]
     Indication: Sinusitis
     Dates: start: 202303, end: 2023
  3. Spray for postnasal drip and throat [Concomitant]
     Indication: Sinusitis
     Dates: start: 202303, end: 2023
  4. Benexol group B vitamin supplement [Concomitant]
     Indication: Sinusitis
  5. PROBIOTICS NOS [Concomitant]
     Active Substance: PROBIOTICS NOS
     Indication: Sinusitis

REACTIONS (11)
  - Respiratory distress [Recovered/Resolved]
  - Respiratory tract oedema [Recovered/Resolved]
  - Swollen tongue [Recovered/Resolved]
  - Gingival swelling [Recovered/Resolved]
  - Generalised oedema [Recovered/Resolved]
  - Erythema [Recovered/Resolved]
  - Rash [Recovered/Resolved]
  - Skin burning sensation [Recovered/Resolved]
  - Macule [Recovering/Resolving]
  - Dry skin [Not Recovered/Not Resolved]
  - Pruritus [Not Recovered/Not Resolved]

NARRATIVE: CASE EVENT DATE: 20230101
